FAERS Safety Report 4785661-X (Version None)
Quarter: 2005Q3

REPORT INFORMATION
  Report Type: 
  Country: None (occurrence: None)
  Receive Date: 20050930
  Receipt Date: 20050930
  Transmission Date: 20060218
  Serious: No
  Sender: FDA-Public Use
  Company Number: None

PATIENT
  Age: 75 Year
  Sex: Female
  Weight: 63.5 kg

DRUGS (14)
  1. FLUCONAZOLE [Suspect]
     Indication: DIABETES MELLITUS INSULIN-DEPENDENT
     Dosage: 200 MG DAILY PO
     Route: 048
     Dates: start: 20050922, end: 20050927
  2. FLUCONAZOLE [Suspect]
     Indication: LUNG INFECTION
     Dosage: 200 MG DAILY PO
     Route: 048
     Dates: start: 20050922, end: 20050927
  3. GLIPIZIDE [Suspect]
     Indication: DIABETES MELLITUS NON-INSULIN-DEPENDENT
     Dosage: 5 MG DAILY PO
     Route: 048
     Dates: start: 20050101, end: 20050927
  4. POTASSIUM [Concomitant]
  5. LASIX [Concomitant]
  6. OLANZAPINE [Concomitant]
  7. FAMOTIDINE [Concomitant]
  8. RAMIPRIL [Concomitant]
  9. PANTOPRAZOLE [Concomitant]
  10. THEOPHYLLINE [Concomitant]
  11. CLOPIDOGREL BISULFATE [Concomitant]
  12. ASPIRIN [Concomitant]
  13. CEFTRIAXONE [Concomitant]
  14. LINZOLID [Concomitant]

REACTIONS (3)
  - BLOOD GLUCOSE DECREASED [None]
  - DRUG INTERACTION [None]
  - HYPOGLYCAEMIA [None]
